FAERS Safety Report 11567900 (Version 1)
Quarter: 2015Q3

REPORT INFORMATION
  Report Type: Spontaneous
  Country: US (occurrence: US)
  Receive Date: 20150916
  Receipt Date: 20150916
  Transmission Date: 20151125
  Serious: No
  Sender: FDA-Public Use
  Company Number: US-ELI_LILLY_AND_COMPANY-US200908000836

PATIENT
  Age: 55 Year
  Sex: Female

DRUGS (18)
  1. FORTEO [Suspect]
     Active Substance: TERIPARATIDE
     Dosage: 20 UG, DAILY (1/D)
  2. LYRICA [Concomitant]
     Active Substance: PREGABALIN
  3. ASTELIN [Concomitant]
     Active Substance: AZELASTINE HYDROCHLORIDE
  4. ACIPHEX [Concomitant]
     Active Substance: RABEPRAZOLE SODIUM
  5. VALTREX [Concomitant]
     Active Substance: VALACYCLOVIR HYDROCHLORIDE
  6. MULTIVITAMIN [Concomitant]
     Active Substance: VITAMINS
  7. AXERT [Concomitant]
     Active Substance: ALMOTRIPTAN MALATE
  8. ELESTAT [Concomitant]
     Active Substance: EPINASTINE HYDROCHLORIDE
  9. ZETIA [Concomitant]
     Active Substance: EZETIMIBE
  10. LIPITOR [Concomitant]
     Active Substance: ATORVASTATIN CALCIUM
  11. TIZANIDINE. [Concomitant]
     Active Substance: TIZANIDINE
  12. XOPENEX [Concomitant]
     Active Substance: LEVALBUTEROL HYDROCHLORIDE
  13. ASMANEX [Concomitant]
     Active Substance: MOMETASONE FUROATE
  14. TRILEPTAL [Concomitant]
     Active Substance: OXCARBAZEPINE
  15. TYLENOL [Concomitant]
     Active Substance: ACETAMINOPHEN
  16. FORTEO [Suspect]
     Active Substance: TERIPARATIDE
     Dosage: 20 UG, DAILY (1/D)
  17. PROVIGIL [Concomitant]
     Active Substance: MODAFINIL
  18. ESTRADIOL. [Concomitant]
     Active Substance: ESTRADIOL

REACTIONS (2)
  - White blood cell count decreased [Not Recovered/Not Resolved]
  - Blood test abnormal [Unknown]

NARRATIVE: CASE EVENT DATE: 20090116
